FAERS Safety Report 8032419-4 (Version None)
Quarter: 2012Q1

REPORT INFORMATION
  Report Type: 
  Country: None (occurrence: None)
  Receive Date: 20120105
  Receipt Date: 20111226
  Transmission Date: 20120608
  Serious: Yes (Hospitalization)
  Sender: FDA-Public Use
  Company Number: 1000026610

PATIENT
  Age: 88 Year

DRUGS (2)
  1. MEMANTINE HYDROCHLORIDE [Suspect]
     Indication: DEMENTIA ALZHEIMER'S TYPE
     Dosage: 5 MG (5 MG, 1 IN 1 D)
     Dates: start: 20110801
  2. MEMANTINE HYDROCHLORIDE [Suspect]
     Indication: DEMENTIA ALZHEIMER'S TYPE
     Dosage: 20 MG (20 MG, 1 IN 1 D)

REACTIONS (6)
  - SOMNOLENCE [None]
  - CREATININE RENAL CLEARANCE DECREASED [None]
  - FALL [None]
  - HALLUCINATION [None]
  - FRACTURE [None]
  - THINKING ABNORMAL [None]
